FAERS Safety Report 18749337 (Version 2)
Quarter: 2021Q3

REPORT INFORMATION
  Report Type: Report from Study
  Country: US (occurrence: US)
  Receive Date: 20210116
  Receipt Date: 20210903
  Transmission Date: 20211014
  Serious: Yes (Other)
  Sender: FDA-Public Use
  Company Number: US-TAKEDA-2021TUS002147

PATIENT
  Sex: Male
  Weight: 155 kg

DRUGS (36)
  1. HUMAN NORMAL IMMUNOGLOBULIN [Suspect]
     Active Substance: HUMAN IMMUNOGLOBULIN G
     Indication: IMMUNODEFICIENCY COMMON VARIABLE
     Dosage: 30 GRAM, Q4WEEKS
     Route: 042
     Dates: start: 20180306
  2. TESTOSTERONE. [Concomitant]
     Active Substance: TESTOSTERONE
  3. ANORO ELLIPTA [Concomitant]
     Active Substance: UMECLIDINIUM BROMIDE\VILANTEROL TRIFENATATE
  4. LIPITOR [Concomitant]
     Active Substance: ATORVASTATIN CALCIUM
  5. ACETAMINOPHEN. [Concomitant]
     Active Substance: ACETAMINOPHEN
  6. DIPHENHYDRAMINE. [Concomitant]
     Active Substance: DIPHENHYDRAMINE
  7. ALPRAZOLAM. [Concomitant]
     Active Substance: ALPRAZOLAM
  8. ROBAXIN [Concomitant]
     Active Substance: METHOCARBAMOL
  9. BENAZEPRIL [Concomitant]
     Active Substance: BENAZEPRIL HYDROCHLORIDE
  10. MELATONIN [Concomitant]
     Active Substance: MELATONIN
  11. CENTRUM ACTIVE [Concomitant]
  12. VITAMIN B12 [Concomitant]
     Active Substance: CYANOCOBALAMIN
  13. VITAMIN D3 [Concomitant]
     Active Substance: CHOLECALCIFEROL
  14. PROTONIX [OMEPRAZOLE] [Concomitant]
     Active Substance: OMEPRAZOLE
  15. SINGULAIR [Concomitant]
     Active Substance: MONTELUKAST SODIUM
  16. ASPIRIN (E.C.) [Concomitant]
     Active Substance: ASPIRIN
  17. MOBIC [Concomitant]
     Active Substance: MELOXICAM
  18. SODIUM CHLORIDE. [Concomitant]
     Active Substance: SODIUM CHLORIDE
  19. EPINEPHRINE. [Concomitant]
     Active Substance: EPINEPHRINE
  20. SILVER [Concomitant]
     Active Substance: SILVER
  21. ALBUTEROL [SALBUTAMOL SULFATE] [Concomitant]
     Active Substance: ALBUTEROL SULFATE
  22. CARAFATE [Concomitant]
     Active Substance: SUCRALFATE
  23. LIDOCAINE. [Concomitant]
     Active Substance: LIDOCAINE
  24. MUCINEX [Concomitant]
     Active Substance: GUAIFENESIN
  25. NORVASC [Concomitant]
     Active Substance: AMLODIPINE BESYLATE
  26. DALIRESP [Concomitant]
     Active Substance: ROFLUMILAST
  27. ALLOPURINOL. [Concomitant]
     Active Substance: ALLOPURINOL
  28. NASACORT [Concomitant]
     Active Substance: TRIAMCINOLONE ACETONIDE
  29. CITRUCEL [Concomitant]
     Active Substance: METHYLCELLULOSE (4000 MPA.S)
  30. AMITRIPTYLINE ZINC [Concomitant]
  31. KLOR?CON [Concomitant]
     Active Substance: POTASSIUM CHLORIDE
  32. BELSOMRA [Concomitant]
     Active Substance: SUVOREXANT
  33. OXYGEN. [Concomitant]
     Active Substance: OXYGEN
  34. ACETYL L?CARNITINE [ACETYLCARNITINE HYDROCHLORIDE] [Concomitant]
  35. HCTZ [Concomitant]
     Active Substance: HYDROCHLOROTHIAZIDE
  36. TOPROL XL [Concomitant]
     Active Substance: METOPROLOL SUCCINATE

REACTIONS (2)
  - Pneumonia [Unknown]
  - Bronchitis [Unknown]
